FAERS Safety Report 11907511 (Version 1)
Quarter: 2016Q1

REPORT INFORMATION
  Report Type: Spontaneous
  Country: US (occurrence: US)
  Receive Date: 20160111
  Receipt Date: 20160111
  Transmission Date: 20160526
  Serious: Yes (Life-Threatening, Hospitalization, Other)
  Sender: FDA-Public Use
  Company Number: US-GLAXOSMITHKLINE-US2016002561

PATIENT
  Age: 7 Year
  Sex: Female

DRUGS (7)
  1. LAMICTAL [Suspect]
     Active Substance: LAMOTRIGINE
     Indication: EPILEPSY
     Dosage: 275 MG, QD (MORNING)
     Route: 048
     Dates: start: 20090312, end: 20090410
  2. LAMICTAL [Suspect]
     Active Substance: LAMOTRIGINE
     Indication: CYTOGENETIC ABNORMALITY
     Dosage: 300 MG, QD (EVENING)
     Route: 048
     Dates: start: 20090312, end: 20090410
  3. LAMOTRIGINE. [Suspect]
     Active Substance: LAMOTRIGINE
     Indication: CYTOGENETIC ABNORMALITY
  4. LAMICTAL [Suspect]
     Active Substance: LAMOTRIGINE
     Dosage: 300 MG, BID
     Route: 048
     Dates: start: 20090410
  5. ONFI [Concomitant]
     Active Substance: CLOBAZAM
  6. LAMOTRIGINE. [Suspect]
     Active Substance: LAMOTRIGINE
     Indication: EPILEPSY
     Dosage: 300 MG, BID
     Route: 048
     Dates: start: 200902, end: 20090312
  7. TOPAMAX [Concomitant]
     Active Substance: TOPIRAMATE

REACTIONS (7)
  - Gastroenteritis viral [Unknown]
  - Anticonvulsant drug level below therapeutic [Unknown]
  - Seizure [Recovered/Resolved]
  - Dehydration [Recovered/Resolved]
  - Vomiting [Recovered/Resolved]
  - Weight decreased [Recovered/Resolved]
  - Performance status decreased [Recovered/Resolved]

NARRATIVE: CASE EVENT DATE: 200902
